FAERS Safety Report 4393857-4 (Version None)
Quarter: 2004Q3

REPORT INFORMATION
  Report Type: 
  Country: None (occurrence: None)
  Receive Date: 20040702
  Receipt Date: 20040623
  Transmission Date: 20050211
  Serious: Yes (Other)
  Sender: FDA-Public Use
  Company Number: 2004042632

PATIENT
  Sex: Male

DRUGS (2)
  1. NEURONTIN [Suspect]
     Indication: ILL-DEFINED DISORDER
     Dosage: ORAL
     Route: 048
     Dates: end: 20040622
  2. ALL OTHER THERAPEUTIC PRODUCTS [Concomitant]

REACTIONS (6)
  - CENTRAL NERVOUS SYSTEM STIMULATION [None]
  - FEELING ABNORMAL [None]
  - HIV TEST POSITIVE [None]
  - NERVOUSNESS [None]
  - SEDATION [None]
  - TREMOR [None]
